FAERS Safety Report 24978220 (Version 1)
Quarter: 2025Q1

REPORT INFORMATION
  Report Type: Spontaneous
  Country: EE (occurrence: EE)
  Receive Date: 20250217
  Receipt Date: 20250217
  Transmission Date: 20250409
  Serious: Yes (Other)
  Sender: JOHNSON AND JOHNSON
  Company Number: None

PATIENT
  Age: 21 Year
  Sex: Female

DRUGS (8)
  1. SPRAVATO [Suspect]
     Active Substance: ESKETAMINE
     Indication: Major depression
     Dosage: LAST SPRAVATO DOSE WITH 28MG  WAS ADMINISTERED ON 25-OCT-2024.
     Route: 045
     Dates: start: 20241004
  2. ESTRADIOL [Concomitant]
     Active Substance: ESTRADIOL
     Route: 065
  3. CYPROTERONE [Concomitant]
     Active Substance: CYPROTERONE
     Route: 048
  4. PREGABALIN [Concomitant]
     Active Substance: PREGABALIN
     Route: 048
  5. METHYLPHENIDATE [Concomitant]
     Active Substance: METHYLPHENIDATE
     Indication: Attention deficit hyperactivity disorder
     Route: 048
  6. PROPRANOLOL [Concomitant]
     Active Substance: PROPRANOLOL HYDROCHLORIDE
     Route: 048
  7. DIAZEPAM [Concomitant]
     Active Substance: DIAZEPAM
     Route: 048
  8. TIZANIDINE [Concomitant]
     Active Substance: TIZANIDINE
     Route: 048

REACTIONS (3)
  - Suicidal ideation [Recovering/Resolving]
  - Dysphemia [Not Recovered/Not Resolved]
  - Memory impairment [Recovering/Resolving]

NARRATIVE: CASE EVENT DATE: 20241001
